FAERS Safety Report 16860764 (Version 2)
Quarter: 2019Q4

REPORT INFORMATION
  Report Type: Spontaneous
  Country: US (occurrence: US)
  Receive Date: 20190927
  Receipt Date: 20191107
  Transmission Date: 20200122
  Serious: No
  Sender: FDA-Public Use
  Company Number: US-009507513-1909USA005943

PATIENT
  Age: 74 Year
  Sex: Male
  Weight: 65.76 kg

DRUGS (2)
  1. NASONEX [Suspect]
     Active Substance: MOMETASONE FUROATE
     Indication: NASAL CONGESTION
     Dosage: STRENGTH: 50 (UNITS NOT PROVIDED) 2 SPRAYS EACH SIDE ONE TIME/DAY
     Route: 045
     Dates: start: 2009
  2. MOMETASONE FUROATE. [Suspect]
     Active Substance: MOMETASONE FUROATE
     Indication: NASAL CONGESTION
     Dosage: 2 SPRAYS EACH SIDE ONE TIME/DAY
     Route: 045
     Dates: start: 2014

REACTIONS (5)
  - Product quality issue [Unknown]
  - Poor quality device used [Unknown]
  - Product use issue [Unknown]
  - Rhinalgia [Recovered/Resolved]
  - Product dispensing error [Unknown]

NARRATIVE: CASE EVENT DATE: 2014
